FAERS Safety Report 5584591-3 (Version None)
Quarter: 2008Q1

REPORT INFORMATION
  Report Type: 
  Country: None (occurrence: None)
  Receive Date: 20080108
  Receipt Date: 20080103
  Transmission Date: 20080703
  Serious: Yes (Hospitalization)
  Sender: FDA-Public Use
  Company Number: IT-GENENTECH-253757

PATIENT
  Age: 29 Year
  Sex: Female

DRUGS (1)
  1. RAPTIVA [Suspect]
     Indication: PSORIASIS
     Dosage: 100 MG, 1/WEEK
     Route: 058
     Dates: start: 20070101

REACTIONS (2)
  - INTESTINAL FUNCTIONAL DISORDER [None]
  - LYMPHADENITIS [None]
